FAERS Safety Report 8023909-9 (Version None)
Quarter: 2012Q1

REPORT INFORMATION
  Report Type: 
  Country: None (occurrence: None)
  Receive Date: 20120105
  Receipt Date: 20120103
  Transmission Date: 20120608
  Serious: Yes (Hospitalization)
  Sender: FDA-Public Use
  Company Number: US-AMGEN-USASP2012000159

PATIENT
  Age: 65 Year
  Sex: Female

DRUGS (1)
  1. ENBREL [Suspect]
     Indication: RHEUMATOID ARTHRITIS
     Dosage: 50 MG, EVERY FIVE OR SIX DAYS.
     Route: 058
     Dates: start: 20010401

REACTIONS (5)
  - FALL [None]
  - RASH [None]
  - SKIN EXFOLIATION [None]
  - PRURITUS [None]
  - SPINAL FRACTURE [None]
